FAERS Safety Report 19783419 (Version 1)
Quarter: 2021Q3

REPORT INFORMATION
  Report Type: Spontaneous
  Country: US (occurrence: US)
  Receive Date: 20210903
  Receipt Date: 20210903
  Transmission Date: 20211014
  Serious: Yes (Other)
  Sender: FDA-Public Use
  Company Number: US-JNJFOC-20210848936

PATIENT
  Sex: Female

DRUGS (1)
  1. TYLENOL [Suspect]
     Active Substance: ACETAMINOPHEN
     Indication: PAIN
     Dosage: TOOK 3 CAPLETS PER DAY, TWO CAPSULES ONE TIME, AND THEN LATER ON ONE CAPSULE
     Route: 065

REACTIONS (2)
  - Haematochezia [Unknown]
  - Incorrect dose administered [Unknown]
